FAERS Safety Report 4862126-8 (Version None)
Quarter: 2005Q4

REPORT INFORMATION
  Report Type: 
  Country: None (occurrence: None)
  Receive Date: 20051221
  Receipt Date: 20051209
  Transmission Date: 20060501
  Serious: Yes (Other)
  Sender: FDA-Public Use
  Company Number: CA-BRISTOL-MYERS SQUIBB COMPANY-13223383

PATIENT
  Age: 60 Year
  Sex: Male

DRUGS (16)
  1. TEQUIN [Suspect]
  2. ATROVENT [Concomitant]
  3. AVANDIA [Concomitant]
  4. ASPIRIN [Concomitant]
  5. FENOFIBRATE [Concomitant]
  6. FERROUS SULFATE TAB [Concomitant]
  7. FUROSEMIDE [Concomitant]
  8. GLIMEPIRIDE [Concomitant]
  9. GLUCONORM [Concomitant]
  10. INSULIN [Concomitant]
  11. IRBESARTAN [Concomitant]
  12. METFORMIN HCL [Concomitant]
  13. RAMIPRIL [Concomitant]
  14. SIMVASTATIN [Concomitant]
  15. TIAZAC [Concomitant]
  16. VENTOLIN [Concomitant]

REACTIONS (5)
  - DIZZINESS [None]
  - HYPERHIDROSIS [None]
  - HYPOGLYCAEMIA [None]
  - PARAESTHESIA [None]
  - PYREXIA [None]
